FAERS Safety Report 9017454 (Version 1)
Quarter: 2013Q1

REPORT INFORMATION
  Report Type: Spontaneous
  Country: US (occurrence: US)
  Receive Date: 20130117
  Receipt Date: 20130117
  Transmission Date: 20140127
  Serious: Yes (Other)
  Sender: FDA-Public Use
  Company Number: US-ABBOTT-12P-163-1007731-00

PATIENT
  Sex: Female

DRUGS (1)
  1. VICODIN ES 7.5/300 (MIKART) [Suspect]
     Indication: ANALGESIC THERAPY
     Dosage: 7.5/300 MG
     Dates: start: 20121109

REACTIONS (4)
  - Dizziness [Not Recovered/Not Resolved]
  - Drug effect decreased [Not Recovered/Not Resolved]
  - Drug ineffective [Not Recovered/Not Resolved]
  - Somnolence [Not Recovered/Not Resolved]
